FAERS Safety Report 16855639 (Version 1)
Quarter: 2019Q3

REPORT INFORMATION
  Report Type: Spontaneous
  Country: PL (occurrence: PL)
  Receive Date: 20190926
  Receipt Date: 20190926
  Transmission Date: 20191005
  Serious: Yes (Other)
  Sender: FDA-Public Use
  Company Number: PL-AUROBINDO-AUR-APL-2019-062588

PATIENT
  Age: 28 Year
  Sex: Male

DRUGS (3)
  1. LEVOFLOXACIN 500MG [Suspect]
     Active Substance: LEVOFLOXACIN
     Indication: EVIDENCE BASED TREATMENT
     Dosage: 500 MILLIGRAM, ONCE A DAY
     Route: 065
     Dates: start: 201610
  2. AMPICILLIN [Suspect]
     Active Substance: AMPICILLIN
     Indication: PRODUCT USED FOR UNKNOWN INDICATION
     Dosage: 500 MILLIGRAM, 4X500 MG
     Route: 042
  3. LEVOFLOXACIN 500MG [Suspect]
     Active Substance: LEVOFLOXACIN
     Indication: ANTIBIOTIC THERAPY

REACTIONS (10)
  - Pyrexia [Unknown]
  - Back pain [Unknown]
  - Lymphadenopathy [Unknown]
  - Lymphocytic infiltration [Unknown]
  - Skin reaction [Unknown]
  - Leukocytosis [Unknown]
  - Drug ineffective [Unknown]
  - Asthenia [Unknown]
  - Fusobacterium infection [Unknown]
  - Anaemia [Unknown]

NARRATIVE: CASE EVENT DATE: 201610
